FAERS Safety Report 9631663 (Version 3)
Quarter: 2014Q1

REPORT INFORMATION
  Report Type: Spontaneous
  Country: US (occurrence: US)
  Receive Date: 20131018
  Receipt Date: 20140311
  Transmission Date: 20141002
  Serious: Yes (Other)
  Sender: FDA-Public Use
  Company Number: US-PFIZER INC-2013296712

PATIENT
  Age: 65 Year
  Sex: Female
  Weight: 62.59 kg

DRUGS (25)
  1. LYRICA [Suspect]
     Indication: NERVE DEGENERATION
     Dosage: 50 MG, 3X/DAY
     Route: 048
  2. LYRICA [Suspect]
     Indication: DIABETIC NEUROPATHY
     Dosage: 50 MG, DAILY
     Route: 048
     Dates: start: 2013
  3. LYRICA [Suspect]
     Dosage: 100 MG, UNK
     Route: 048
     Dates: start: 20131014
  4. ZOLOFT [Suspect]
     Dosage: 50 MG, P.M
  5. ATENOLOL [Concomitant]
     Indication: CARDIAC DISORDER
     Dosage: 25 MG, 1X/DAY
     Dates: start: 2013
  6. ATENOLOL [Concomitant]
     Indication: PALPITATIONS
  7. ASPIRIN [Concomitant]
     Indication: CARDIOVASCULAR EVENT PROPHYLAXIS
     Dosage: 81 MG, 1X/DAY
  8. CLONAZEPAM [Concomitant]
     Dosage: 0.05 MG, P.M
  9. IRON [Concomitant]
     Dosage: 65 MG, 1X/DAY
  10. LEVOTHYROXINE [Concomitant]
     Dosage: 0.05 MG, A.M
  11. PRAVASTATIN [Concomitant]
     Dosage: 40 MG, A.M
  12. LISINOPRIL [Concomitant]
     Dosage: 10/12.5 MG, PM
  13. METFORMIN [Concomitant]
     Dosage: 1000 MG, 2X/DAY
  14. OMEPRAZOLE [Concomitant]
     Dosage: 20 MG, 2X/DAY
  15. PREDNISONE [Concomitant]
     Dosage: 5 MG, P.M
  16. TRAZODONE [Concomitant]
     Indication: SLEEP DISORDER
     Dosage: 100 MG, UNK
  17. WARFARIN [Concomitant]
     Dosage: 1 MG, P.M
  18. MEPERIDINE [Concomitant]
     Indication: PAIN
     Dosage: 50 MG, 4 HRS AS NEEDED
  19. PROMETHAZINE [Concomitant]
     Indication: NAUSEA
     Dosage: 25 MG, AS NEEDED
  20. ADVAIR [Concomitant]
     Dosage: 100/50, AS NEEDED
  21. ALBUTEROL [Concomitant]
     Indication: RESPIRATORY DISORDER
     Dosage: UNK AS NEEDED
  22. CALTRATE 600+D [Concomitant]
     Dosage: UNK A.M
  23. VITAMIN D [Concomitant]
     Dosage: 2000, P.M
  24. DEMEROL [Concomitant]
     Indication: PAIN
     Dosage: 50 MG, EVERY 4 HOURS AS NEEDED
  25. PROMETHAZINE HYDROCHLORIDE [Concomitant]
     Indication: PAIN
     Dosage: 25 MG, EVERY 4 HOURS AS NEEDED

REACTIONS (4)
  - Pneumonia [Recovered/Resolved]
  - Expired drug administered [Unknown]
  - Oedema peripheral [Not Recovered/Not Resolved]
  - Muscle spasms [Not Recovered/Not Resolved]
